FAERS Safety Report 18840513 (Version 1)
Quarter: 2021Q1

REPORT INFORMATION
  Report Type: Spontaneous
  Country: US (occurrence: US)
  Receive Date: 20210203
  Receipt Date: 20210203
  Transmission Date: 20210419
  Serious: No
  Sender: FDA-Public Use
  Company Number: US-TEIKOKU PHARMA USA-TPU2021-00024

PATIENT
  Age: 90 Year
  Sex: Male
  Weight: 59.02 kg

DRUGS (2)
  1. LIDODERM [Suspect]
     Active Substance: LIDOCAINE
     Indication: BACK PAIN
     Route: 061
  2. LIDODERM [Suspect]
     Active Substance: LIDOCAINE
     Indication: NERVE COMPRESSION
     Dosage: 1.5 PATCH TO HIS BACK AND CUT PIECE TO HIS NECK
     Route: 061

REACTIONS (1)
  - Application site haemorrhage [Recovering/Resolving]

NARRATIVE: CASE EVENT DATE: 202011
